FAERS Safety Report 18054767 (Version 1)
Quarter: 2020Q3

REPORT INFORMATION
  Report Type: Spontaneous
  Country: ES (occurrence: ES)
  Receive Date: 20200722
  Receipt Date: 20200722
  Transmission Date: 20201103
  Serious: Yes (Other)
  Sender: FDA-Public Use
  Company Number: ES-PFIZER INC-2020235956

PATIENT
  Sex: Male

DRUGS (2)
  1. TRANKIMAZIN RETARD [Suspect]
     Active Substance: ALPRAZOLAM
     Dosage: 2 DF (0.5 MG)
  2. TRANKIMAZIN RETARD [Suspect]
     Active Substance: ALPRAZOLAM
     Dosage: 1 MG

REACTIONS (8)
  - Feeling abnormal [Unknown]
  - Panic reaction [Unknown]
  - Somnolence [Unknown]
  - Nightmare [Unknown]
  - Fear [Unknown]
  - Muscle spasms [Unknown]
  - Derealisation [Unknown]
  - Delirium [Unknown]
